FAERS Safety Report 21600473 (Version 4)
Quarter: 2022Q4

REPORT INFORMATION
  Report Type: Report from Study
  Country: CN (occurrence: None)
  Receive Date: 20221116
  Receipt Date: 20221212
  Transmission Date: 20230113
  Serious: Yes (Hospitalization)
  Sender: FDA-Public Use
  Company Number: CN-ROCHE-3218286

PATIENT
  Age: 68 Year
  Sex: Male
  Weight: 72.25 kg

DRUGS (24)
  1. ATEZOLIZUMAB [Suspect]
     Active Substance: ATEZOLIZUMAB
     Indication: Adenosquamous cell carcinoma
     Dosage: START DATE OF MOST RECENT DOSE OF STUDY DRUG PRIOR TO AE ON 21-OCT-2022 AT 1200 MG
     Route: 041
     Dates: start: 20220527
  2. ATEZOLIZUMAB [Suspect]
     Active Substance: ATEZOLIZUMAB
     Indication: Adenocarcinoma
  3. CAPECITABINE [Suspect]
     Active Substance: CAPECITABINE
     Indication: Adenosquamous cell carcinoma
     Dosage: ON 30/SEP/2022, RECEIVED MOST RECENT DOSE OF LAST STUDY CAPECITABINE PRIOR TO ADVERSE EVENT (AE) WAS
     Route: 048
     Dates: start: 20220527
  4. CAPECITABINE [Suspect]
     Active Substance: CAPECITABINE
     Indication: Adenocarcinoma
  5. OXALIPLATIN [Suspect]
     Active Substance: OXALIPLATIN
     Indication: Adenosquamous cell carcinoma
     Dosage: ON 30/SEP/2022, RECEIVED MOST RECENT DOSE OF LAST STUDY OXALIPLATIN PRIOR TO ADVERSE EVENT (AE) 243
     Route: 042
     Dates: start: 20220527
  6. OXALIPLATIN [Suspect]
     Active Substance: OXALIPLATIN
     Indication: Adenocarcinoma
  7. METHYLCOBALAMIN [Concomitant]
     Active Substance: METHYLCOBALAMIN
     Route: 048
     Dates: start: 20220708
  8. PREGABALIN [Concomitant]
     Active Substance: PREGABALIN
     Route: 048
     Dates: start: 20220708
  9. SODIUM CHLORIDE [Concomitant]
     Active Substance: SODIUM CHLORIDE
     Indication: Hyponatraemia
     Dates: start: 20221110, end: 20221110
  10. SODIUM CHLORIDE [Concomitant]
     Active Substance: SODIUM CHLORIDE
     Dates: start: 20221110, end: 20221114
  11. SODIUM CHLORIDE [Concomitant]
     Active Substance: SODIUM CHLORIDE
     Dates: start: 20221115, end: 20221116
  12. MAGNESIUM ISOGLYCYRRHIZINATE [Concomitant]
     Active Substance: MAGNESIUM ISOGLYCYRRHIZINATE
     Dates: start: 20221110, end: 20221110
  13. MAGNESIUM ISOGLYCYRRHIZINATE [Concomitant]
     Active Substance: MAGNESIUM ISOGLYCYRRHIZINATE
     Dates: start: 20221110, end: 20221117
  14. GLYCERIN [Concomitant]
     Active Substance: GLYCERIN
     Dates: start: 20221110, end: 20221110
  15. STRUCTURAL FAT EMULSION INJECTION (C6-24) [Concomitant]
     Dates: start: 20221110, end: 20221110
  16. STRUCTURAL FAT EMULSION INJECTION (C6-24) [Concomitant]
     Dates: start: 20221115, end: 20221116
  17. MULTI-TRACE ELEMENTS INJECTION (II) [Concomitant]
     Dates: start: 20221110, end: 20221116
  18. CALCIUM GLUCONATE [Concomitant]
     Active Substance: CALCIUM GLUCONATE
     Indication: Calcium deficiency
     Route: 048
     Dates: start: 20221110, end: 20221116
  19. MAGNESIUM SULFATE [Concomitant]
     Active Substance: MAGNESIUM SULFATE
     Dates: start: 20221110, end: 20221116
  20. POTASSIUM CHLORIDE [Concomitant]
     Active Substance: POTASSIUM CHLORIDE
     Dates: start: 20221110, end: 20221116
  21. HEPARIN SODIUM [Concomitant]
     Active Substance: HEPARIN SODIUM
     Dates: start: 20221110, end: 20221116
  22. INSULIN NOS [Concomitant]
     Active Substance: INSULIN NOS
     Dates: start: 20221110, end: 20221116
  23. OMEPRAZOLE SODIUM [Concomitant]
     Active Substance: OMEPRAZOLE SODIUM
     Dates: start: 20221110, end: 20221117
  24. LIDOCAINE HYDROCHLORIDE [Concomitant]
     Active Substance: LIDOCAINE HYDROCHLORIDE
     Indication: Local anaesthesia
     Dates: start: 20221111, end: 20221111

REACTIONS (1)
  - Small intestinal obstruction [Recovered/Resolved]

NARRATIVE: CASE EVENT DATE: 20221108
